FAERS Safety Report 17290496 (Version 2)
Quarter: 2021Q2

REPORT INFORMATION
  Report Type: Report from Study
  Country: US (occurrence: US)
  Receive Date: 20200121
  Receipt Date: 20210420
  Transmission Date: 20210716
  Serious: No
  Sender: FDA-Public Use
  Company Number: NVSC2020US013295

PATIENT
  Age: 65 Year
  Sex: Female

DRUGS (1)
  1. GILENYA [Suspect]
     Active Substance: FINGOLIMOD HYDROCHLORIDE
     Indication: MULTIPLE SCLEROSIS
     Dosage: 0.5 MG, QD
     Route: 048
     Dates: start: 20200115

REACTIONS (6)
  - Asthenopia [Unknown]
  - Dizziness [Unknown]
  - Migraine [Unknown]
  - Fatigue [Unknown]
  - Sunburn [Unknown]
  - Dry eye [Unknown]

NARRATIVE: CASE EVENT DATE: 20210418
